FAERS Safety Report 4821869-2 (Version None)
Quarter: 2005Q4

REPORT INFORMATION
  Report Type: 
  Country: None (occurrence: None)
  Receive Date: 20051102
  Receipt Date: 20051013
  Transmission Date: 20060501
  Serious: Yes (Death)
  Sender: FDA-Public Use
  Company Number: GBS051018769

PATIENT
  Age: 55 Year
  Sex: Male

DRUGS (2)
  1. CIALIS [Suspect]
     Dosage: 20 MG
     Dates: start: 20050701
  2. VIAGRA [Concomitant]

REACTIONS (1)
  - PNEUMONIA ASPIRATION [None]
